FAERS Safety Report 7390603-7 (Version None)
Quarter: 2011Q2

REPORT INFORMATION
  Report Type: 
  Country: None (occurrence: None)
  Receive Date: 20110404
  Receipt Date: 20110324
  Transmission Date: 20111010
  Serious: Yes (Hospitalization)
  Sender: FDA-Public Use
  Company Number: US-BIOGENIDEC-2010BI034389

PATIENT
  Sex: Female

DRUGS (7)
  1. AVONEX [Suspect]
     Route: 030
     Dates: start: 20071224, end: 20081103
  2. REBIF [Concomitant]
  3. NEURONTIN [Concomitant]
  4. REQUIP [Concomitant]
  5. SOMA [Concomitant]
  6. AVONEX [Suspect]
     Indication: MULTIPLE SCLEROSIS
     Route: 030
     Dates: start: 20051226, end: 20070925
  7. CAMPRAL [Concomitant]
     Dates: start: 20051121

REACTIONS (8)
  - PAIN [None]
  - INFLUENZA LIKE ILLNESS [None]
  - DEPRESSION [None]
  - PAIN IN EXTREMITY [None]
  - MUSCLE TIGHTNESS [None]
  - ALCOHOL PROBLEM [None]
  - RESTLESS LEGS SYNDROME [None]
  - INSOMNIA [None]
